FAERS Safety Report 4644707-X (Version None)
Quarter: 2005Q2

REPORT INFORMATION
  Report Type: 
  Country: None (occurrence: None)
  Receive Date: 20050426
  Receipt Date: 20050414
  Transmission Date: 20051028
  Serious: Yes (Death, Hospitalization)
  Sender: FDA-Public Use
  Company Number: JP-JNJFOC-20050302284

PATIENT
  Age: 56 Year
  Sex: Male

DRUGS (8)
  1. TAVANIC [Suspect]
     Route: 049
     Dates: start: 20040728, end: 20040921
  2. TAVANIC [Suspect]
     Indication: FEBRILE INFECTION
     Route: 049
     Dates: start: 20040728, end: 20040921
  3. PARACETAMOL [Concomitant]
  4. FLUCONAZOLE [Concomitant]
  5. DIAZEPAM [Concomitant]
  6. PHENHYDAN [Concomitant]
  7. AZULFIDINE [Concomitant]
  8. GENTAMICIN [Concomitant]

REACTIONS (5)
  - CONVULSION [None]
  - MULTI-ORGAN FAILURE [None]
  - PSYCHOTIC DISORDER [None]
  - SEPSIS [None]
  - VISUAL DISTURBANCE [None]
